FAERS Safety Report 6250432-4 (Version None)
Quarter: 2009Q2

REPORT INFORMATION
  Report Type: 
  Country: None (occurrence: None)
  Receive Date: 20090626
  Receipt Date: 20090616
  Transmission Date: 20091009
  Serious: Yes (Other)
  Sender: FDA-Public Use
  Company Number: WAES 0906USA02984

PATIENT
  Age: 82 Year
  Sex: Male

DRUGS (1)
  1. SINGULAIR [Suspect]
     Indication: URAEMIC PRURITUS
     Dosage: 10 MG DAILY PO
     Route: 048

REACTIONS (1)
  - MYELODYSPLASTIC SYNDROME [None]
